FAERS Safety Report 9324413 (Version 1)
Quarter: 2013Q2

REPORT INFORMATION
  Report Type: Spontaneous
  Country: TH (occurrence: TH)
  Receive Date: 20130603
  Receipt Date: 20130603
  Transmission Date: 20140414
  Serious: Yes (Hospitalization)
  Sender: FDA-Public Use
  Company Number: TH-EISAI INC-E2090-02659-SPO-TH

PATIENT
  Age: 35 Year
  Sex: Male
  Weight: 77 kg

DRUGS (2)
  1. ZONEGRAN [Suspect]
     Indication: EPILEPSY
     Route: 048
     Dates: start: 20120201, end: 201211
  2. ZONEGRAN [Suspect]
     Route: 048
     Dates: start: 201211

REACTIONS (1)
  - Nephrolithiasis [Not Recovered/Not Resolved]
